FAERS Safety Report 6716557-1 (Version None)
Quarter: 2010Q2

REPORT INFORMATION
  Report Type: 
  Country: None (occurrence: None)
  Receive Date: 20100507
  Receipt Date: 20100426
  Transmission Date: 20101027
  Serious: Yes (Hospitalization)
  Sender: FDA-Public Use
  Company Number: US-ELI_LILLY_AND_COMPANY-US201004007778

PATIENT
  Age: 55 Year
  Sex: Male

DRUGS (1)
  1. CYMBALTA [Suspect]
     Dosage: 30 MG, DAILY (1/D)

REACTIONS (1)
  - ARTERIOSPASM CORONARY [None]
